FAERS Safety Report 6256439-5 (Version None)
Quarter: 2009Q2

REPORT INFORMATION
  Report Type: 
  Country: None (occurrence: None)
  Receive Date: 20090630
  Receipt Date: 20090630
  Transmission Date: 20091009
  Serious: No
  Sender: FDA-Public Use
  Company Number: None

PATIENT
  Age: 61 Year
  Sex: Female
  Weight: 79.3795 kg

DRUGS (1)
  1. TOPAMAX [Suspect]
     Indication: MIGRAINE
     Dosage: 25MG 1 TWICE A DAY PO
     Route: 048
     Dates: start: 20080512, end: 20080706

REACTIONS (2)
  - MEMORY IMPAIRMENT [None]
  - THINKING ABNORMAL [None]
